FAERS Safety Report 4744664-1 (Version None)
Quarter: 2005Q3

REPORT INFORMATION
  Report Type: 
  Country: None (occurrence: None)
  Receive Date: 20050815
  Receipt Date: 20050803
  Transmission Date: 20060218
  Serious: Yes (Other)
  Sender: FDA-Public Use
  Company Number: JP-JNJFOC-20050801759

PATIENT
  Sex: Female
  Weight: 42 kg

DRUGS (23)
  1. REMICADE [Suspect]
     Route: 042
  2. REMICADE [Suspect]
     Route: 042
  3. REMICADE [Suspect]
     Route: 042
  4. REMICADE [Suspect]
     Route: 042
  5. REMICADE [Suspect]
     Route: 042
  6. REMICADE [Suspect]
     Route: 042
  7. REMICADE [Suspect]
     Route: 042
  8. REMICADE [Suspect]
     Route: 042
  9. REMICADE [Suspect]
     Route: 042
  10. REMICADE [Suspect]
     Route: 042
  11. REMICADE [Suspect]
     Route: 042
  12. REMICADE [Suspect]
     Indication: RHEUMATOID ARTHRITIS
     Route: 042
  13. RHEUMATREX [Suspect]
     Route: 048
  14. RHEUMATREX [Suspect]
     Route: 048
  15. RHEUMATREX [Suspect]
     Route: 048
  16. RHEUMATREX [Suspect]
     Indication: RHEUMATOID ARTHRITIS
     Route: 048
  17. PREDNISOLONE [Suspect]
     Indication: RHEUMATOID ARTHRITIS
     Route: 048
     Dates: start: 20031203, end: 20040331
  18. HYPEN [Concomitant]
     Indication: RHEUMATOID ARTHRITIS
     Route: 048
     Dates: start: 20031203, end: 20050212
  19. ISCOTIN [Concomitant]
     Indication: TUBERCULOSIS PROPHYLAXIS
     Route: 048
  20. COUGH SUPPRESSANT [Concomitant]
  21. COUGH SUPPRESSANT [Concomitant]
  22. COUGH SUPPRESSANT [Concomitant]
  23. COUGH SUPPRESSANT [Concomitant]

REACTIONS (3)
  - COMPRESSION FRACTURE [None]
  - CRYPTOCOCCOSIS [None]
  - PNEUMONIA FUNGAL [None]
